FAERS Safety Report 12323535 (Version 1)
Quarter: 2016Q2

REPORT INFORMATION
  Report Type: Spontaneous
  Country: CA (occurrence: CA)
  Receive Date: 20160502
  Receipt Date: 20160502
  Transmission Date: 20160815
  Serious: Yes (Other)
  Sender: FDA-Public Use
  Company Number: CA-TEVA-656421USA

PATIENT

DRUGS (1)
  1. TEVA-ALENDRONIC ACID [Suspect]
     Active Substance: ALENDRONIC ACID
     Indication: OSTEOPOROSIS
     Dosage: STRENGTH IS 70MG
     Dates: start: 201503

REACTIONS (19)
  - Photopsia [Unknown]
  - Activities of daily living impaired [Unknown]
  - Visual impairment [Unknown]
  - Unevaluable event [Unknown]
  - Impaired driving ability [Unknown]
  - Halo vision [Unknown]
  - Cerebrovascular accident [Unknown]
  - Sinusitis [Unknown]
  - Photopsia [Unknown]
  - Eye pain [Unknown]
  - Feeling of despair [Unknown]
  - Headache [Unknown]
  - Adverse event [Unknown]
  - Papilloedema [Unknown]
  - Ocular vasculitis [Unknown]
  - Eye disorder [Unknown]
  - Blindness unilateral [Recovering/Resolving]
  - Vision blurred [Unknown]
  - Pain [Unknown]

NARRATIVE: CASE EVENT DATE: 2015
